FAERS Safety Report 8529124-4 (Version None)
Quarter: 2012Q3

REPORT INFORMATION
  Report Type: 
  Country: None (occurrence: None)
  Receive Date: 20120717
  Receipt Date: 20120717
  Transmission Date: 20120928
  Serious: No
  Sender: FDA-Public Use
  Company Number: None

PATIENT

DRUGS (1)
  1. CEFTRIAXONE [Suspect]
     Dosage: INJECTABLE INJECTION 500 MG/VIAL SINGLE USE VIAL

REACTIONS (1)
  - DRUG LABEL CONFUSION [None]
